FAERS Safety Report 6868500-2 (Version None)
Quarter: 2010Q3

REPORT INFORMATION
  Report Type: 
  Country: None (occurrence: None)
  Receive Date: 20100722
  Receipt Date: 20080531
  Transmission Date: 20110219
  Serious: No
  Sender: FDA-Public Use
  Company Number: US-PFIZER INC-2008047370

PATIENT
  Sex: Female
  Weight: 68.04 kg

DRUGS (10)
  1. CHANTIX [Suspect]
     Indication: SMOKING CESSATION THERAPY
     Dates: start: 20080501
  2. DEPAKOTE [Concomitant]
  3. ADDERALL 10 [Concomitant]
  4. CLONIDINE [Concomitant]
  5. XANAX [Concomitant]
  6. IMITREX [Concomitant]
  7. CODEINE [Concomitant]
  8. HYDROCODONE [Concomitant]
  9. AMBIEN [Concomitant]
  10. THYROID TAB [Concomitant]

REACTIONS (4)
  - AGGRESSION [None]
  - DRUG ADMINISTRATION ERROR [None]
  - HOSTILITY [None]
  - TOBACCO USER [None]
